FAERS Safety Report 5103122-5 (Version None)
Quarter: 2006Q3

REPORT INFORMATION
  Report Type: 
  Country: None (occurrence: None)
  Receive Date: 20060908
  Receipt Date: 20060907
  Transmission Date: 20061208
  Serious: Yes (Life-Threatening, Other)
  Sender: FDA-Public Use
  Company Number: 2006AL002532

PATIENT
  Age: 64 Year
  Sex: Female

DRUGS (5)
  1. DICLOFENAC [Suspect]
     Dosage: 50 MG;TID;PO
     Route: 048
     Dates: end: 20060629
  2. DESLORATADINE [Concomitant]
  3. LISINOPRIL [Concomitant]
  4. METFORMIN [Concomitant]
  5. SIMVASTATIN [Concomitant]

REACTIONS (2)
  - PHARMACEUTICAL PRODUCT COMPLAINT [None]
  - RENAL FAILURE ACUTE [None]
